FAERS Safety Report 6999025-1 (Version None)
Quarter: 2010Q3

REPORT INFORMATION
  Report Type: 
  Country: None (occurrence: None)
  Receive Date: 20100920
  Receipt Date: 20100908
  Transmission Date: 20110219
  Serious: Yes (Hospitalization)
  Sender: FDA-Public Use
  Company Number: NL-JNJFOC-20100903626

PATIENT
  Sex: Male
  Weight: 67.9 kg

DRUGS (2)
  1. INFLIXIMAB, RECOMBINANT [Suspect]
     Indication: INFLAMMATORY BOWEL DISEASE
     Route: 042
  2. AZATHIOPRINE [Concomitant]

REACTIONS (2)
  - ABSCESS INTESTINAL [None]
  - GASTROINTESTINAL DISORDER [None]
